FAERS Safety Report 8144604-1 (Version None)
Quarter: 2012Q1

REPORT INFORMATION
  Report Type: 
  Country: None (occurrence: None)
  Receive Date: 20120217
  Receipt Date: 20120203
  Transmission Date: 20120608
  Serious: Yes (Hospitalization, Other)
  Sender: FDA-Public Use
  Company Number: DE-ROCHE-1029643

PATIENT
  Sex: Female

DRUGS (7)
  1. HERCEPTIN [Suspect]
     Dates: start: 20111018, end: 20111018
  2. ATACAND [Concomitant]
     Indication: HYPERTENSION
     Route: 048
  3. LEVOTHYROXINE SODIUM [Concomitant]
     Indication: HYPOTHYROIDISM
     Route: 048
  4. HERCEPTIN [Suspect]
     Indication: BREAST CANCER
     Dates: start: 20111108, end: 20120104
  5. TAXOTERE [Suspect]
  6. TAXOL [Suspect]
     Indication: BREAST CANCER
  7. TAXOTERE [Suspect]
     Indication: BREAST CANCER

REACTIONS (4)
  - PNEUMONIA PRIMARY ATYPICAL [None]
  - INTERSTITIAL LUNG DISEASE [None]
  - DIARRHOEA [None]
  - PULMONARY OEDEMA [None]
